FAERS Safety Report 8488716-1 (Version None)
Quarter: 2012Q3

REPORT INFORMATION
  Report Type: 
  Country: None (occurrence: None)
  Receive Date: 20120705
  Receipt Date: 20120629
  Transmission Date: 20120928
  Serious: Yes (Hospitalization)
  Sender: FDA-Public Use
  Company Number: IT-ROCHE-1052933

PATIENT
  Sex: Male
  Weight: 75 kg

DRUGS (7)
  1. PEGASYS [Suspect]
     Indication: HIV INFECTION
  2. COPEGUS [Suspect]
     Indication: HEPATITIS C
     Route: 048
     Dates: start: 20120225
  3. COPEGUS [Suspect]
     Indication: HIV INFECTION
  4. PEGASYS [Suspect]
     Indication: HEPATITIS C
     Route: 058
     Dates: start: 20120225
  5. BI 201335 (HCV PROTEASE INHIBITOR) [Suspect]
     Indication: HEPATITIS C
     Route: 048
     Dates: start: 20120225
  6. BI 201335 (HCV PROTEASE INHIBITOR) [Suspect]
     Indication: HIV INFECTION
  7. CITALOPRAM HYDROBROMIDE [Concomitant]
     Indication: ANXIETY
     Route: 048
     Dates: start: 20120224

REACTIONS (3)
  - SYNCOPE [None]
  - HYPERPYREXIA [None]
  - LYMPHOCELE [None]
